FAERS Safety Report 4331630-3 (Version None)
Quarter: 2004Q2

REPORT INFORMATION
  Report Type: 
  Country: None (occurrence: None)
  Receive Date: 20040401
  Receipt Date: 20040401
  Transmission Date: 20050107
  Serious: Yes (Hospitalization)
  Sender: FDA-Public Use
  Company Number: None

PATIENT
  Age: 69 Year
  Sex: Female
  Weight: 63.05 kg

DRUGS (2)
  1. TAXOL [Suspect]
     Indication: LARYNGEAL CANCER
     Dosage: 64 MG IV WEEKLY
     Route: 042
     Dates: start: 20031219, end: 20040312
  2. CARBOPLATIN [Suspect]
     Dosage: 110 MG IV WEEKLY
     Route: 042
     Dates: start: 20031219, end: 20040312

REACTIONS (7)
  - ABNORMAL FAECES [None]
  - ASPIRATION [None]
  - CARDIAC FAILURE CONGESTIVE [None]
  - IMPLANT SITE INFECTION [None]
  - MUCOSAL INFLAMMATION [None]
  - NEUTROPENIA [None]
  - PNEUMONIA [None]
